FAERS Safety Report 17540694 (Version 2)
Quarter: 2020Q2

REPORT INFORMATION
  Report Type: Spontaneous
  Country: FR (occurrence: FR)
  Receive Date: 20200313
  Receipt Date: 20200410
  Transmission Date: 20200713
  Serious: No
  Sender: FDA-Public Use
  Company Number: FR-BRISTOL-MYERS SQUIBB COMPANY-BMS-2020-021376

PATIENT
  Sex: Male
  Weight: 114 kg

DRUGS (4)
  1. ELIQUIS [Suspect]
     Active Substance: APIXABAN
     Indication: CEREBROVASCULAR ACCIDENT PROPHYLAXIS
     Dosage: 5 MILLIGRAM, BID
     Route: 048
     Dates: start: 2019
  2. CARDENSIEL [Concomitant]
     Active Substance: BISOPROLOL FUMARATE
     Indication: ISCHAEMIC CARDIOMYOPATHY
     Dosage: ^75^ (1 DF DAILY)
     Route: 048
     Dates: start: 2008
  3. ELIQUIS [Suspect]
     Active Substance: APIXABAN
     Indication: PHLEBITIS
     Route: 065
  4. TAHOR [Concomitant]
     Active Substance: ATORVASTATIN CALCIUM
     Indication: PRODUCT USED FOR UNKNOWN INDICATION
     Dosage: 40 (1 DF DAILY)
     Route: 048
     Dates: start: 2008

REACTIONS (1)
  - Phlebitis [Recovered/Resolved]
